FAERS Safety Report 6976775-4 (Version None)
Quarter: 2010Q3

REPORT INFORMATION
  Report Type: 
  Country: None (occurrence: None)
  Receive Date: 20100910
  Receipt Date: 20090430
  Transmission Date: 20110219
  Serious: No
  Sender: FDA-Public Use
  Company Number: US-WYE-H09181409

PATIENT
  Sex: Female
  Weight: 59.84 kg

DRUGS (1)
  1. PRISTIQ [Suspect]
     Indication: ANXIETY
     Route: 048
     Dates: start: 20090428

REACTIONS (10)
  - AGITATION [None]
  - ANXIETY [None]
  - CONDITION AGGRAVATED [None]
  - DRY MOUTH [None]
  - HYPERHIDROSIS [None]
  - PERIPHERAL COLDNESS [None]
  - POOR QUALITY SLEEP [None]
  - RETCHING [None]
  - SALIVA ALTERED [None]
  - SEDATION [None]
